FAERS Safety Report 7238101-5 (Version None)
Quarter: 2011Q1

REPORT INFORMATION
  Report Type: 
  Country: None (occurrence: None)
  Receive Date: 20110119
  Receipt Date: 20110119
  Transmission Date: 20110831
  Serious: Yes (Other)
  Sender: FDA-Public Use
  Company Number: None

PATIENT
  Age: 7 Year
  Sex: Male
  Weight: 21.7727 kg

DRUGS (1)
  1. LISINOPRIL [Suspect]
     Indication: HYPOPLASTIC LEFT HEART SYNDROME
     Dosage: 2.5MG OR 1/2 TABLET 1X DAILY
     Dates: start: 20060811, end: 20110113

REACTIONS (2)
  - DYSPHONIA [None]
  - APHONIA [None]
